FAERS Safety Report 4805383-6 (Version None)
Quarter: 2005Q4

REPORT INFORMATION
  Report Type: 
  Country: None (occurrence: None)
  Receive Date: 20051017
  Receipt Date: 20051007
  Transmission Date: 20060501
  Serious: Yes (Other)
  Sender: FDA-Public Use
  Company Number: 2005US-00876

PATIENT
  Age: 37 Year
  Sex: Female

DRUGS (1)
  1. MINOCYCLINE HYDROCHLORIDE [Suspect]
     Indication: WOUND INFECTION STAPHYLOCOCCAL
     Dosage: 100 MG, BID

REACTIONS (3)
  - BONE DISORDER [None]
  - IMPAIRED HEALING [None]
  - INFECTION [None]
